FAERS Safety Report 15964431 (Version 5)
Quarter: 2025Q2

REPORT INFORMATION
  Report Type: Spontaneous
  Country: US (occurrence: US)
  Receive Date: 20190215
  Receipt Date: 20250616
  Transmission Date: 20250717
  Serious: Yes (Other)
  Sender: BIOGEN
  Company Number: US-BIOGENIDEC-2011BI042168

PATIENT
  Age: 24 Year
  Sex: Female

DRUGS (4)
  1. TYSABRI [Suspect]
     Active Substance: NATALIZUMAB
     Indication: Multiple sclerosis
     Route: 050
     Dates: start: 20090717, end: 20111031
  2. TYSABRI [Suspect]
     Active Substance: NATALIZUMAB
     Dosage: INFUSED OVER 1 HOUR
     Route: 050
     Dates: start: 20090717, end: 20120117
  3. TYSABRI [Suspect]
     Active Substance: NATALIZUMAB
     Route: 050
  4. TYSABRI [Suspect]
     Active Substance: NATALIZUMAB
     Route: 050
     Dates: start: 20090717, end: 20111118

REACTIONS (20)
  - Anaphylactic shock [Recovered/Resolved]
  - Dry skin [Unknown]
  - Pain of skin [Not Recovered/Not Resolved]
  - Ophthalmoplegia [Not Recovered/Not Resolved]
  - Feeling hot [Unknown]
  - Visual impairment [Unknown]
  - Skin atrophy [Unknown]
  - Erythema [Not Recovered/Not Resolved]
  - Migraine [Unknown]
  - Skin burning sensation [Unknown]
  - Hypotension [Unknown]
  - Rash erythematous [Unknown]
  - Pyrexia [Unknown]
  - Feeling cold [Unknown]
  - Urticaria [Not Recovered/Not Resolved]
  - Headache [Not Recovered/Not Resolved]
  - Fatigue [Not Recovered/Not Resolved]
  - Pruritus [Not Recovered/Not Resolved]
  - Flushing [Unknown]
  - Hypertension [Not Recovered/Not Resolved]

NARRATIVE: CASE EVENT DATE: 20110501
